FAERS Safety Report 19128946 (Version 3)
Quarter: 2021Q2

REPORT INFORMATION
  Report Type: Report from Study
  Country: IT (occurrence: IT)
  Receive Date: 20210413
  Receipt Date: 20210430
  Transmission Date: 20210717
  Serious: Yes (Death)
  Sender: FDA-Public Use
  Company Number: IT-PFIZER INC-2021394853

PATIENT
  Age: 82 Year
  Sex: Female

DRUGS (4)
  1. VP?16 [Suspect]
     Active Substance: ETOPOSIDE
     Dosage: 200 MG, CYCLIC (MG P.O. (UTILIZING THE VIALS FOR PARENTERAL ADMINISTRATION) ON DAYS 3 AND 5)
     Route: 048
  2. MITOXANTRONE HCL [Suspect]
     Active Substance: MITOXANTRONE HYDROCHLORIDE
     Indication: NON-HODGKIN^S LYMPHOMA
     Dosage: UNK, CYCLIC (7?9 MG/M2 ON DAY 1)
     Route: 042
  3. VP?16 [Suspect]
     Active Substance: ETOPOSIDE
     Indication: NON-HODGKIN^S LYMPHOMA
     Dosage: 150 MG((I.V. 2?HOUR INFUSION)) DAY 1
     Route: 042
  4. PREDNISONE. [Suspect]
     Active Substance: PREDNISONE
     Indication: NON-HODGKIN^S LYMPHOMA
     Dosage: 25 MG, CYCLIC (ADMINISTERED ON DAYS 1 TO 5)
     Route: 048

REACTIONS (1)
  - Myocardial infarction [Fatal]
